FAERS Safety Report 12942614 (Version 1)
Quarter: 2016Q4

REPORT INFORMATION
  Report Type: Spontaneous
  Country: CA (occurrence: CA)
  Receive Date: 20161114
  Receipt Date: 20161114
  Transmission Date: 20170207
  Serious: Yes (Life-Threatening)
  Sender: FDA-Public Use
  Company Number: PHHY2016CA153320

PATIENT
  Age: 10 Year
  Sex: Male
  Weight: 34 kg

DRUGS (4)
  1. FENTANYL. [Concomitant]
     Active Substance: FENTANYL
     Indication: PRODUCT USED FOR UNKNOWN INDICATION
     Route: 065
  2. SEVOFLURANE. [Concomitant]
     Active Substance: SEVOFLURANE
     Indication: PRODUCT USED FOR UNKNOWN INDICATION
     Route: 055
  3. PROPOFOL. [Concomitant]
     Active Substance: PROPOFOL
     Indication: PRODUCT USED FOR UNKNOWN INDICATION
     Route: 065
  4. ROCURONIUM BROMIDE SANDOZ [Suspect]
     Active Substance: ROCURONIUM BROMIDE
     Indication: INDUCTION OF ANAESTHESIA
     Dosage: 1 MG/KG, ONCE/SINGLE
     Route: 042

REACTIONS (4)
  - Obstructive airways disorder [Recovering/Resolving]
  - Hypotension [Recovering/Resolving]
  - Rash [Recovering/Resolving]
  - Anaphylactic shock [Recovering/Resolving]
